FAERS Safety Report 8137783-3 (Version None)
Quarter: 2012Q1

REPORT INFORMATION
  Report Type: 
  Country: None (occurrence: None)
  Receive Date: 20120215
  Receipt Date: 20120208
  Transmission Date: 20120608
  Serious: Yes (Other)
  Sender: FDA-Public Use
  Company Number: US-BAYER-2010-000689

PATIENT
  Age: 27 Year
  Sex: Female
  Weight: 106.58 kg

DRUGS (2)
  1. YASMIN [Suspect]
     Dosage: UNK
     Dates: start: 20010101, end: 20050101
  2. DROSPIRENONE AND ETHINYL ESTRADIOL [Suspect]
     Dosage: UNK
     Dates: start: 20090701, end: 20100101

REACTIONS (2)
  - GALLBLADDER DISORDER [None]
  - RENAL FAILURE [None]
